FAERS Safety Report 5054966-X (Version None)
Quarter: 2006Q3

REPORT INFORMATION
  Report Type: 
  Country: None (occurrence: None)
  Receive Date: 20060719
  Receipt Date: 20060712
  Transmission Date: 20061208
  Serious: Yes (Life-Threatening, Hospitalization, Disabling, Other)
  Sender: FDA-Public Use
  Company Number: US-GLAXOSMITHKLINE-A0612018A

PATIENT
  Age: 30 Year
  Sex: Female

DRUGS (2)
  1. LAMICTAL [Suspect]
     Indication: BIPOLAR DISORDER
     Dosage: 25MG PER DAY
     Route: 048
     Dates: start: 20060629, end: 20060701
  2. UNSPECIFIED MEDICATION [Concomitant]

REACTIONS (6)
  - ANAPHYLACTIC REACTION [None]
  - MOUTH ULCERATION [None]
  - RESPIRATORY DISTRESS [None]
  - SKIN ULCER [None]
  - STEVENS-JOHNSON SYNDROME [None]
  - SWELLING [None]
